FAERS Safety Report 11455048 (Version 1)
Quarter: 2015Q3

REPORT INFORMATION
  Report Type: Report from Study
  Country: FR (occurrence: FR)
  Receive Date: 20150903
  Receipt Date: 20150903
  Transmission Date: 20151125
  Serious: Yes (Other)
  Sender: FDA-Public Use
  Company Number: FR-SA-2015SA131531

PATIENT
  Sex: Male
  Weight: 2.32 kg

DRUGS (4)
  1. ZOLPIDEM [Suspect]
     Active Substance: ZOLPIDEM\ZOLPIDEM TARTRATE
     Indication: MATERNAL EXPOSURE TIMING UNSPECIFIED
     Route: 064
  2. ARIPIPRAZOLE. [Suspect]
     Active Substance: ARIPIPRAZOLE
     Indication: MATERNAL EXPOSURE TIMING UNSPECIFIED
     Route: 064
  3. ZOPICLONE [Suspect]
     Active Substance: ZOPICLONE
     Indication: MATERNAL EXPOSURE TIMING UNSPECIFIED
     Route: 064
  4. OXAZEPAM. [Suspect]
     Active Substance: OXAZEPAM
     Indication: MATERNAL EXPOSURE TIMING UNSPECIFIED
     Route: 064

REACTIONS (2)
  - Foetal growth restriction [Unknown]
  - Foetal exposure during pregnancy [Unknown]
